FAERS Safety Report 8789641 (Version 1)
Quarter: 2012Q4

REPORT INFORMATION
  Report Type: Spontaneous
  Country: US (occurrence: None)
  Receive Date: 20120910
  Receipt Date: 20120910
  Transmission Date: 20130627
  Serious: Yes (Other)
  Sender: FDA-Public Use
  Company Number: None

PATIENT
  Age: 73 Year
  Sex: Female
  Weight: 63 kg

DRUGS (7)
  1. LISINOPRIL [Suspect]
     Indication: HYPERTENSION
     Route: 048
     Dates: start: 20120111, end: 20120112
  2. ALBUTEROL [Concomitant]
  3. AMLODIPINE [Concomitant]
  4. CEFTRIAXONE [Concomitant]
  5. CHOLECALCIFEROL [Concomitant]
  6. GUAIFENESIN LA [Concomitant]
  7. PSEUDOEPHEDRINE [Concomitant]

REACTIONS (1)
  - Angioedema [None]
